FAERS Safety Report 15206582 (Version 1)
Quarter: 2018Q3

REPORT INFORMATION
  Report Type: Spontaneous
  Country: US (occurrence: US)
  Receive Date: 20180727
  Receipt Date: 20180727
  Transmission Date: 20181010
  Serious: No
  Sender: FDA-Public Use
  Company Number: US-PFIZER INC-2018301878

PATIENT
  Age: 72 Year
  Sex: Male

DRUGS (2)
  1. ZYVOX [Suspect]
     Active Substance: LINEZOLID
     Indication: PERIPHERAL SWELLING
     Dosage: 600 MG, TWICE A DAY
     Dates: start: 20180720
  2. ZYVOX [Suspect]
     Active Substance: LINEZOLID
     Indication: STAPHYLOCOCCAL INFECTION

REACTIONS (6)
  - Malaise [Unknown]
  - Lethargy [Not Recovered/Not Resolved]
  - Product use issue [Unknown]
  - Hyperhidrosis [Not Recovered/Not Resolved]
  - Expired product administered [Unknown]
  - Nausea [Not Recovered/Not Resolved]

NARRATIVE: CASE EVENT DATE: 20180720
